FAERS Safety Report 13362532 (Version 1)
Quarter: 2017Q1

REPORT INFORMATION
  Report Type: Spontaneous
  Country: US (occurrence: US)
  Receive Date: 20170323
  Receipt Date: 20170323
  Transmission Date: 20170429
  Serious: No
  Sender: FDA-Public Use
  Company Number: US-PFIZER INC-2017111699

PATIENT
  Sex: Female

DRUGS (1)
  1. DUAVEE [Suspect]
     Active Substance: BAZEDOXIFENE ACETATE\ESTROGENS, CONJUGATED
     Dosage: UNK

REACTIONS (8)
  - Hypoaesthesia [Unknown]
  - Myalgia [Recovering/Resolving]
  - Peripheral swelling [Unknown]
  - Bone pain [Recovering/Resolving]
  - Limb discomfort [Unknown]
  - Insomnia [Recovering/Resolving]
  - Neck pain [Unknown]
  - Drug dose omission [Unknown]
